FAERS Safety Report 11703809 (Version 1)
Quarter: 2015Q4

REPORT INFORMATION
  Report Type: Spontaneous
  Country: US (occurrence: US)
  Receive Date: 20151106
  Receipt Date: 20151106
  Transmission Date: 20160304
  Serious: No
  Sender: FDA-Public Use
  Company Number: US-AMGEN-USASP2015116103

PATIENT
  Age: 49 Year
  Sex: Female
  Weight: 68.27 kg

DRUGS (1)
  1. ENBREL [Suspect]
     Active Substance: ETANERCEPT
     Indication: SPONDYLOARTHROPATHY
     Dosage: 50 MG, QWEEK
     Route: 058
     Dates: start: 20150102, end: 2015

REACTIONS (4)
  - Eye swelling [Recovered/Resolved]
  - Ocular hyperaemia [Recovered/Resolved]
  - Off label use [Unknown]
  - Eye pruritus [Recovered/Resolved]

NARRATIVE: CASE EVENT DATE: 20150102
